FAERS Safety Report 19033981 (Version 1)
Quarter: 2021Q1

REPORT INFORMATION
  Report Type: Spontaneous
  Country: CZ (occurrence: CZ)
  Receive Date: 20210319
  Receipt Date: 20210319
  Transmission Date: 20210420
  Serious: Yes (Other)
  Sender: FDA-Public Use
  Company Number: NVSC2021CZ047906

PATIENT
  Sex: Male

DRUGS (2)
  1. BROLUCIZUMAB. [Suspect]
     Active Substance: BROLUCIZUMAB
     Indication: PRODUCT USED FOR UNKNOWN INDICATION
     Dosage: 0.05 ML, RIGHT EYE
     Route: 031
     Dates: start: 20201210
  2. BROLUCIZUMAB. [Suspect]
     Active Substance: BROLUCIZUMAB
     Dosage: 0.05 ML, RIGHT EYE
     Route: 031
     Dates: start: 20210115

REACTIONS (7)
  - Ocular discomfort [Recovering/Resolving]
  - Retinal artery occlusion [Unknown]
  - Retinal artery embolism [Recovering/Resolving]
  - Retinal vein occlusion [Unknown]
  - Retinal vasculitis [Not Recovered/Not Resolved]
  - Visual acuity reduced [Recovering/Resolving]
  - Vision blurred [Recovering/Resolving]

NARRATIVE: CASE EVENT DATE: 20210117
